FAERS Safety Report 7812992-9 (Version None)
Quarter: 2011Q4

REPORT INFORMATION
  Report Type: 
  Country: None (occurrence: None)
  Receive Date: 20111011
  Receipt Date: 20110928
  Transmission Date: 20120403
  Serious: Yes (Other)
  Sender: FDA-Public Use
  Company Number: DSA_47778_2011

PATIENT
  Age: 12 Month
  Sex: Female

DRUGS (2)
  1. ZOVIRAX [Suspect]
     Indication: ORAL HERPES
     Dosage: 0.4 G ORAL
     Route: 048
     Dates: start: 20110924, end: 20110926
  2. FLOMOX [Concomitant]

REACTIONS (1)
  - AGRANULOCYTOSIS [None]
